FAERS Safety Report 4295917-5 (Version None)
Quarter: 2004Q1

REPORT INFORMATION
  Report Type: 
  Country: None (occurrence: None)
  Receive Date: 20040216
  Receipt Date: 20031205
  Transmission Date: 20041129
  Serious: Yes (Other)
  Sender: FDA-Public Use
  Company Number: US-GLAXOSMITHKLINE-A0442194A

PATIENT
  Age: 56 Year
  Sex: Male

DRUGS (1)
  1. LAMICTAL [Suspect]
     Indication: EPILEPSY
     Dosage: 150MG TWICE PER DAY
     Route: 048
     Dates: start: 20030701

REACTIONS (5)
  - CONVULSION [None]
  - DYSPNOEA [None]
  - FATIGUE [None]
  - HYPOAESTHESIA [None]
  - VISION BLURRED [None]
